FAERS Safety Report 24323187 (Version 1)
Quarter: 2024Q3

REPORT INFORMATION
  Report Type: Spontaneous
  Country: US (occurrence: US)
  Receive Date: 20240916
  Receipt Date: 20240916
  Transmission Date: 20241017
  Serious: Yes (Other)
  Sender: PFIZER
  Company Number: US-PFIZER INC-PV202400118853

PATIENT
  Age: 66 Year
  Sex: Female

DRUGS (1)
  1. PREMARIN [Suspect]
     Active Substance: ESTROGENS, CONJUGATED
     Indication: Menopause
     Dosage: INSERT 0.5 GRAMS AT NIGHT TIME
     Dates: start: 20240905

REACTIONS (4)
  - Device ineffective [Unknown]
  - Device issue [Unknown]
  - Incorrect dose administered by device [Unknown]
  - Urinary tract infection [Unknown]
